FAERS Safety Report 7509529-0 (Version None)
Quarter: 2011Q2

REPORT INFORMATION
  Report Type: 
  Country: None (occurrence: None)
  Receive Date: 20110519
  Receipt Date: 20110505
  Transmission Date: 20111010
  Serious: Yes (Death, Hospitalization)
  Sender: FDA-Public Use
  Company Number: 2011MA005430

PATIENT
  Age: 48 Year
  Sex: Female

DRUGS (3)
  1. IRINOTECAN HYDROCHLORIDE [Suspect]
     Indication: COLON CANCER
     Dosage: 150 MG/M2
     Dates: start: 20080501
  2. LEUCOVORIN CALCIUM [Concomitant]
  3. FLUOROURACIL [Concomitant]

REACTIONS (4)
  - PULMONARY EMBOLISM [None]
  - METABOLIC ACIDOSIS [None]
  - HEART RATE INCREASED [None]
  - PELVIC MASS [None]
